FAERS Safety Report 7410682-8 (Version None)
Quarter: 2011Q2

REPORT INFORMATION
  Report Type: 
  Country: None (occurrence: None)
  Receive Date: 20110413
  Receipt Date: 20101018
  Transmission Date: 20111010
  Serious: Yes (Hospitalization, Other)
  Sender: FDA-Public Use
  Company Number: US-BAYER-201033780NA

PATIENT
  Age: 40 Year
  Sex: Female
  Weight: 79.365 kg

DRUGS (12)
  1. OCELLA [Suspect]
     Indication: PRODUCT USED FOR UNKNOWN INDICATION
     Route: 048
  2. YASMIN [Suspect]
     Indication: CONTRACEPTION
     Dosage: UNK
     Route: 048
     Dates: start: 20040101, end: 20090101
  3. IBUPROFEN [Concomitant]
  4. TORADOL [Concomitant]
  5. REGLAN [Concomitant]
  6. YAZ [Suspect]
     Indication: PRODUCT USED FOR UNKNOWN INDICATION
     Dosage: UNK
     Route: 048
     Dates: start: 20040101, end: 20080101
  7. MORPHINE [Concomitant]
  8. MAALOX [CALCIUM CARBONATE] [Concomitant]
  9. PROTONIX [Concomitant]
  10. AMOXICILLIN [Concomitant]
  11. ADVIL [IBUPROFEN] [Concomitant]
  12. DILAUDID [Concomitant]

REACTIONS (5)
  - BILIARY DYSKINESIA [None]
  - CHOLECYSTITIS CHRONIC [None]
  - INJURY [None]
  - GALLBLADDER OPERATION [None]
  - BILIARY COLIC [None]
